FAERS Safety Report 8330832-9 (Version None)
Quarter: 2012Q2

REPORT INFORMATION
  Report Type: 
  Country: None (occurrence: None)
  Receive Date: 20120502
  Receipt Date: 20120423
  Transmission Date: 20120825
  Serious: Yes (Death)
  Sender: FDA-Public Use
  Company Number: US-ROCHE-1029101

PATIENT
  Sex: Female

DRUGS (1)
  1. RITUXAN [Suspect]
     Indication: PRODUCT USED FOR UNKNOWN INDICATION

REACTIONS (10)
  - NAUSEA [None]
  - DIARRHOEA [None]
  - VOMITING [None]
  - FATIGUE [None]
  - THROMBOCYTOPENIA [None]
  - INFECTION [None]
  - DEATH [None]
  - CONSTIPATION [None]
  - ANAEMIA [None]
  - NEUTROPENIA [None]
